FAERS Safety Report 10095474 (Version 1)
Quarter: 2014Q2

REPORT INFORMATION
  Report Type: Spontaneous
  Country: FR (occurrence: FR)
  Receive Date: 20140422
  Receipt Date: 20140422
  Transmission Date: 20141212
  Serious: Yes (Other)
  Sender: FDA-Public Use
  Company Number: FR-PFIZER INC-2014108630

PATIENT
  Age: 44 Year
  Sex: Female

DRUGS (1)
  1. EFFEXOR LP [Suspect]
     Dosage: 75 MG
     Dates: start: 1994

REACTIONS (6)
  - Aggression [Unknown]
  - Emotional disorder [Unknown]
  - Educational problem [Unknown]
  - Mental disorder [Unknown]
  - Feeling abnormal [Unknown]
  - General physical health deterioration [Unknown]
